FAERS Safety Report 7724319-1 (Version None)
Quarter: 2011Q3

REPORT INFORMATION
  Report Type: 
  Country: None (occurrence: None)
  Receive Date: 20110829
  Receipt Date: 20110816
  Transmission Date: 20111222
  Serious: Yes (Hospitalization)
  Sender: FDA-Public Use
  Company Number: GB-ACCORD-010349

PATIENT
  Age: 35 Year
  Sex: Male

DRUGS (10)
  1. BISOPROLOL FUMARATE [Concomitant]
  2. DIGOXIN [Concomitant]
  3. MEBEVERINE (MEBEVERINE) [Concomitant]
  4. METFORMIN HCL [Suspect]
     Indication: PRODUCT USED FOR UNKNOWN INDICATION
     Dosage: 1.0 G-2.00 TIMES, PER 1.0 DAYS, ORAL
     Route: 048
  5. GLIMEPIRIDE [Suspect]
     Indication: PRODUCT USED FOR UNKNOWN INDICATION
     Dosage: 4.00-1.00 TIMES, PER 1.0 DAYS, ORAL
     Route: 048
  6. RAMIPRIL [Suspect]
     Indication: PRODUCT USED FOR UNKNOWN INDICATION
     Dosage: 10.00MG-1.00 TIMES PER 1.0 DAYS,  ORAL
     Route: 048
  7. SIMVASTATIN [Concomitant]
  8. TRIMETHOPRIM [Concomitant]
  9. OMEPRAZOLE [Concomitant]
  10. BUMETANIDE [Concomitant]

REACTIONS (2)
  - RENAL FAILURE ACUTE [None]
  - HYPOGLYCAEMIA [None]
